FAERS Safety Report 4328905-0 (Version None)
Quarter: 2004Q1

REPORT INFORMATION
  Report Type: 
  Country: None (occurrence: None)
  Receive Date: 20040329
  Receipt Date: 20040119
  Transmission Date: 20041129
  Serious: No
  Sender: FDA-Public Use
  Company Number: 04P-163-0247528-00

PATIENT
  Age: 76 Year
  Sex: Female
  Weight: 63.5036 kg

DRUGS (6)
  1. HUMIRA [Suspect]
     Indication: RHEUMATOID ARTHRITIS
     Dosage: 40 MG, 1 IN 2 WK, SUBCUTANEOUS
     Route: 058
     Dates: start: 20030801
  2. PREDNISONE [Concomitant]
  3. AMLODIPINE BESYLATE [Concomitant]
  4. FOLIC ACID [Concomitant]
  5. CELECOXIB [Concomitant]
  6. SERTRALINE HYDROCHLORIDE [Concomitant]

REACTIONS (2)
  - RASH MACULO-PAPULAR [None]
  - SINUSITIS [None]
